FAERS Safety Report 9008518 (Version 1)
Quarter: 2013Q1

REPORT INFORMATION
  Report Type: Spontaneous
  Country: CA (occurrence: CA)
  Receive Date: 20130111
  Receipt Date: 20130111
  Transmission Date: 20140127
  Serious: Yes (Other)
  Sender: FDA-Public Use
  Company Number: PHHY2013CA002482

PATIENT
  Sex: Male

DRUGS (1)
  1. AFINITOR [Suspect]
     Indication: RENAL CELL CARCINOMA
     Dosage: 10 MG, DAILY
     Route: 048
     Dates: start: 20121110

REACTIONS (5)
  - Malaise [Unknown]
  - Heart rate increased [Unknown]
  - Blood pressure increased [Unknown]
  - Decreased appetite [Unknown]
  - Dysgeusia [Unknown]
